FAERS Safety Report 9426566 (Version 1)
Quarter: 2013Q3

REPORT INFORMATION
  Report Type: Spontaneous
  Country: US (occurrence: US)
  Receive Date: 20130730
  Receipt Date: 20130730
  Transmission Date: 20140515
  Serious: No
  Sender: FDA-Public Use
  Company Number: US-PFIZER INC-2013219811

PATIENT
  Age: 59 Year
  Sex: Male
  Weight: 75.28 kg

DRUGS (1)
  1. LYRICA [Suspect]
     Indication: DIABETIC NEUROPATHY
     Dosage: 75 MG, 1X/DAY
     Route: 048
     Dates: start: 201304

REACTIONS (2)
  - Inappropriate schedule of drug administration [Unknown]
  - Insomnia [Unknown]
